FAERS Safety Report 8496267-3 (Version None)
Quarter: 2012Q3

REPORT INFORMATION
  Report Type: 
  Country: None (occurrence: None)
  Receive Date: 20120709
  Receipt Date: 20120705
  Transmission Date: 20120928
  Serious: Yes (Other)
  Sender: FDA-Public Use
  Company Number: US-PFIZER INC-2012131450

PATIENT
  Sex: Male
  Weight: 68.934 kg

DRUGS (8)
  1. NEXIUM [Concomitant]
     Dosage: 40 MG, DAILY
  2. LIPITOR [Suspect]
     Indication: BLOOD CHOLESTEROL INCREASED
     Dosage: 10 MG, DAILY
     Route: 048
  3. LIPITOR [Suspect]
     Dosage: 20 MG, DAILY
     Dates: end: 20120701
  4. VIACTIV /USA/ [Concomitant]
     Dosage: UNK, 2X/DAY
  5. TAMOXIFEN [Concomitant]
     Dosage: 20 MG, DAILY
  6. SOTALOL [Concomitant]
     Dosage: 40 MG, 2X/DAY (HALF TABLET OF 80 MG)
     Route: 048
  7. WARFARIN [Concomitant]
     Dosage: 5 MG, DAILY
  8. DOXAZOSIN [Concomitant]
     Dosage: 2 MG, DAILY

REACTIONS (1)
  - HYPOACUSIS [None]
